FAERS Safety Report 10951048 (Version 1)
Quarter: 2015Q1

REPORT INFORMATION
  Report Type: Spontaneous
  Country: US (occurrence: None)
  Receive Date: 20150226
  Receipt Date: 20150226
  Transmission Date: 20150721
  Serious: No
  Sender: FDA-Public Use
  Company Number: TAP2005Q00695

PATIENT
  Age: 67 Year
  Sex: Female
  Weight: 62.6 kg

DRUGS (2)
  1. PREVACID [Suspect]
     Active Substance: LANSOPRAZOLE
     Indication: GASTROOESOPHAGEAL REFLUX DISEASE
     Route: 048
     Dates: start: 1998, end: 20041228
  2. NORSVAC (AMLODIPINE BESILATE) [Concomitant]

REACTIONS (4)
  - Asthma [None]
  - Abdominal rigidity [None]
  - Condition aggravated [None]
  - Gastric polyps [None]

NARRATIVE: CASE EVENT DATE: 200412
